FAERS Safety Report 12508640 (Version 1)
Quarter: 2016Q2

REPORT INFORMATION
  Report Type: Spontaneous
  Country: GB (occurrence: GB)
  Receive Date: 20160629
  Receipt Date: 20160629
  Transmission Date: 20160815
  Serious: Yes (Other)
  Sender: FDA-Public Use
  Company Number: GB-TEVA-670400ACC

PATIENT
  Age: 68 Year
  Sex: Female
  Weight: 57.6 kg

DRUGS (7)
  1. AMITRIPTYLINE [Concomitant]
     Active Substance: AMITRIPTYLINE
  2. GLUCOSAMINE WITH CHONDROITIN [Concomitant]
  3. TRIMETHOPRIM. [Suspect]
     Active Substance: TRIMETHOPRIM
     Indication: URINARY TRACT INFECTION
     Route: 048
     Dates: start: 20160407, end: 20160411
  4. ATORVASTATIN [Concomitant]
     Active Substance: ATORVASTATIN
  5. SOYA ISOFLAVONES [Concomitant]
     Active Substance: ISOFLAVONES SOY
  6. MAGNESIUM [Concomitant]
     Active Substance: MAGNESIUM
  7. BOOTS ZINC [Concomitant]

REACTIONS (1)
  - Visual impairment [Recovered/Resolved with Sequelae]

NARRATIVE: CASE EVENT DATE: 20160408
